FAERS Safety Report 12399782 (Version 2)
Quarter: 2016Q3

REPORT INFORMATION
  Report Type: Report from Study
  Country: RO (occurrence: RO)
  Receive Date: 20160524
  Receipt Date: 20160718
  Transmission Date: 20161109
  Serious: Yes (Hospitalization)
  Sender: FDA-Public Use
  Company Number: RO-ABBVIE-16P-135-1632374-00

PATIENT
  Sex: Female

DRUGS (2)
  1. LEPONEX [Concomitant]
     Active Substance: CLOZAPINE
     Indication: HALLUCINATION
     Route: 048
     Dates: start: 20141115
  2. DUODOPA [Suspect]
     Active Substance: CARBIDOPA\LEVODOPA
     Indication: PARKINSON^S DISEASE
     Dosage: DM-8 ML, RC-6.5 ML, ED-2 ML
     Route: 050
     Dates: start: 20141104

REACTIONS (5)
  - Duodenal ulcer [Unknown]
  - Syncope [Not Recovered/Not Resolved]
  - Melaena [Unknown]
  - Hypotension [Not Recovered/Not Resolved]
  - Hypokinesia [Not Recovered/Not Resolved]
